FAERS Safety Report 8763743 (Version 4)
Quarter: 2012Q4

REPORT INFORMATION
  Report Type: 
  Country: CA (occurrence: CA)
  Receive Date: 20120831
  Receipt Date: 20121015
  Transmission Date: 20130627
  Serious: Yes (Other)
  Sender: FDA-Public Use
  Company Number: PHHY2012CA074737

PATIENT
  Sex: Female

DRUGS (2)
  1. ACLASTA [Suspect]
     Indication: OSTEOPOROSIS
     Dosage: 5 mg
     Route: 042
     Dates: start: 20111011
  2. MIACALCIN [Concomitant]

REACTIONS (2)
  - Spinal fracture [Recovered/Resolved]
  - Abasia [Unknown]
